FAERS Safety Report 9409987 (Version 3)
Quarter: 2013Q3

REPORT INFORMATION
  Report Type: Report from Study
  Country: JP (occurrence: JP)
  Receive Date: 20130719
  Receipt Date: 20130814
  Transmission Date: 20140515
  Serious: Yes (Hospitalization)
  Sender: FDA-Public Use
  Company Number: JP-NOVOPROD-382827

PATIENT
  Age: 22 Year
  Sex: Female
  Weight: 83 kg

DRUGS (7)
  1. NORDITROPIN FLEXPRO [Suspect]
     Indication: GROWTH HORMONE DEFICIENCY
     Dosage: 0.2 MG, QD
     Route: 058
     Dates: start: 20110712
  2. LEVOTHYROXINE SODIUM [Concomitant]
     Indication: HYPOTHYROIDISM
     Dosage: 150 ?G, QD
     Route: 048
  3. DESMOPRESSIN ACETATE [Concomitant]
     Indication: DIABETES INSIPIDUS
     Dosage: 5 ?G
     Route: 045
  4. HYDROCORTISONE [Concomitant]
     Indication: ADRENAL INSUFFICIENCY
     Dosage: 10 MG, QD
     Route: 048
  5. CONJUGATED ESTROGENS [Concomitant]
     Indication: HYPOGONADISM
     Dosage: 0.62 MG, QD
     Route: 048
  6. NORETHISTERONE [Concomitant]
     Indication: HYPOGONADISM
     Dosage: 5 MG, QD
     Route: 048
  7. TOPIRAMATE [Concomitant]
     Dosage: 50-100MG/DAY
     Route: 048

REACTIONS (1)
  - Neoplasm recurrence [Recovered/Resolved]
